FAERS Safety Report 13874741 (Version 1)
Quarter: 2017Q3

REPORT INFORMATION
  Report Type: Spontaneous
  Country: US (occurrence: US)
  Receive Date: 20170816
  Receipt Date: 20170816
  Transmission Date: 20171127
  Serious: No
  Sender: FDA-Public Use
  Company Number: US-ROCHE-1355248

PATIENT
  Sex: Female

DRUGS (7)
  1. LUCENTIS [Suspect]
     Active Substance: RANIBIZUMAB
     Indication: RETINAL DISORDER
     Dosage: LEFT EYE
     Route: 065
     Dates: start: 201211, end: 201212
  2. GLIBENCLAMIDE/METFORMIN HYDROCHLORIDE [Concomitant]
     Dosage: DOSE: 5-500 UNIT NOT REPORTED
     Route: 065
  3. LYRICA [Concomitant]
     Active Substance: PREGABALIN
     Route: 065
  4. ZOCOR [Concomitant]
     Active Substance: SIMVASTATIN
     Route: 065
  5. ACTOS [Concomitant]
     Active Substance: PIOGLITAZONE HYDROCHLORIDE
     Route: 065
  6. HYDROCHLOROTHIAZIDE. [Concomitant]
     Active Substance: HYDROCHLOROTHIAZIDE
     Route: 065
  7. WELLBUTRIN XL [Concomitant]
     Active Substance: BUPROPION HYDROCHLORIDE
     Route: 065

REACTIONS (3)
  - Drug hypersensitivity [Unknown]
  - Dry eye [Unknown]
  - Visual impairment [Unknown]
